FAERS Safety Report 16490266 (Version 1)
Quarter: 2019Q2

REPORT INFORMATION
  Report Type: Spontaneous
  Country: CH (occurrence: CH)
  Receive Date: 20190628
  Receipt Date: 20190628
  Transmission Date: 20190711
  Serious: Yes (Hospitalization)
  Sender: FDA-Public Use
  Company Number: CH-TEVA-2019-CH-1068936

PATIENT
  Age: 60 Year
  Sex: Male

DRUGS (4)
  1. METFORMIN [Suspect]
     Active Substance: METFORMIN HYDROCHLORIDE
     Indication: TYPE 2 DIABETES MELLITUS
     Dosage: 2 GRAM DAILY;
  2. IMIPENEM [Concomitant]
     Active Substance: IMIPENEM
     Indication: UROSEPSIS
  3. FLUCONAZOLE. [Concomitant]
     Active Substance: FLUCONAZOLE
  4. IMIPENEM [Concomitant]
     Active Substance: IMIPENEM
     Indication: ESCHERICHIA SEPSIS

REACTIONS (10)
  - Proctitis [Unknown]
  - Cardiovascular disorder [Unknown]
  - Rhabdomyolysis [Unknown]
  - Enterococcal bacteraemia [Unknown]
  - Coagulopathy [Unknown]
  - Urosepsis [Unknown]
  - Lactic acidosis [Unknown]
  - Acute kidney injury [Unknown]
  - Escherichia sepsis [Unknown]
  - Colitis [Unknown]
